FAERS Safety Report 5440680-5 (Version None)
Quarter: 2007Q3

REPORT INFORMATION
  Report Type: 
  Country: None (occurrence: None)
  Receive Date: 20070831
  Receipt Date: 20070815
  Transmission Date: 20080115
  Serious: No
  Sender: FDA-Public Use
  Company Number: US-BOEHRINGER INGELHEIM PHARMACEUTICALS, INC.-2007-BP-18468BP

PATIENT
  Age: 61 Year
  Sex: Male

DRUGS (3)
  1. FLOMAX [Suspect]
     Indication: BENIGN PROSTATIC HYPERPLASIA
     Route: 048
     Dates: start: 20070625
  2. FLOMAX [Suspect]
     Indication: PROSTATE EXAMINATION ABNORMAL
  3. FLOMAX [Suspect]
     Indication: URINARY RETENTION

REACTIONS (1)
  - MUSCLE SPASMS [None]
